FAERS Safety Report 10154073 (Version 1)
Quarter: 2014Q2

REPORT INFORMATION
  Report Type: Spontaneous
  Country: US (occurrence: None)
  Receive Date: 20140502
  Receipt Date: 20140502
  Transmission Date: 20141212
  Serious: Yes (Hospitalization)
  Sender: FDA-Public Use
  Company Number: UTC-047830

PATIENT
  Age: 66 Year
  Sex: Male
  Weight: 58.95 kg

DRUGS (4)
  1. TYVASO [Suspect]
     Indication: SYSTEMIC SCLEROSIS
     Route: 055
     Dates: start: 20130508
  2. ADCIRCA [Concomitant]
  3. WARFARIN [Concomitant]
  4. TRACLEER [Concomitant]

REACTIONS (2)
  - Respiratory distress [None]
  - Fluid overload [None]
